FAERS Safety Report 5645249-5 (Version None)
Quarter: 2008Q1

REPORT INFORMATION
  Report Type: 
  Country: None (occurrence: None)
  Receive Date: 20080229
  Receipt Date: 20080225
  Transmission Date: 20080703
  Serious: Yes (Hospitalization)
  Sender: FDA-Public Use
  Company Number: JP-ASTRAZENECA-2008AP01437

PATIENT
  Age: 72 Year
  Sex: Female

DRUGS (2)
  1. OMEPRAL [Suspect]
     Route: 048
     Dates: start: 20071101
  2. EBRANTIL [Suspect]
     Dosage: DOSE UNKNOWN
     Route: 048
     Dates: start: 20071101

REACTIONS (1)
  - APLASIA PURE RED CELL [None]
